FAERS Safety Report 6301716-2 (Version None)
Quarter: 2009Q3

REPORT INFORMATION
  Report Type: 
  Country: None (occurrence: None)
  Receive Date: 20090807
  Receipt Date: 20090729
  Transmission Date: 20100115
  Serious: Yes (Hospitalization)
  Sender: FDA-Public Use
  Company Number: CR-ELI_LILLY_AND_COMPANY-CR200907007047

PATIENT
  Age: 55 Year
  Sex: Female

DRUGS (3)
  1. DULOXETINE HYDROCHLORIDE [Suspect]
     Indication: MAJOR DEPRESSION
     Dosage: 30 MG, DAILY (1/D)
     Route: 065
     Dates: start: 20090601
  2. DULOXETINE HYDROCHLORIDE [Suspect]
     Dosage: 60 MG, DAILY (1/D)
     Route: 065
     Dates: end: 20090701
  3. TRICYCLIC ANTIDEPRESSANTS [Concomitant]
     Dates: start: 20090601

REACTIONS (2)
  - HEPATITIS TOXIC [None]
  - JAUNDICE [None]
